FAERS Safety Report 5975999-2 (Version None)
Quarter: 2008Q4

REPORT INFORMATION
  Report Type: 
  Country: None (occurrence: None)
  Receive Date: 20081202
  Receipt Date: 20081128
  Transmission Date: 20090506
  Serious: Yes (Death)
  Sender: FDA-Public Use
  Company Number: PHHY2008JP19496

PATIENT
  Sex: Female
  Weight: 37 kg

DRUGS (10)
  1. ICL670A ICL+DISTAB [Suspect]
     Indication: IRON OVERLOAD
     Dosage: 750 MG DAILY
     Route: 048
     Dates: start: 20080811, end: 20080824
  2. PREDNISOLONE [Concomitant]
     Indication: APLASIA PURE RED CELL
     Dosage: 7.5 MG, UNK
     Route: 048
     Dates: start: 20050131, end: 20080824
  3. CYANOCOBALAMIN [Concomitant]
     Indication: PROPHYLAXIS
     Dosage: 1500 UG, UNK
     Route: 048
     Dates: start: 20050314, end: 20080824
  4. AMARYL [Concomitant]
     Dosage: 2 MG, UNK
     Route: 048
     Dates: start: 20050506, end: 20080824
  5. ONEALFA [Concomitant]
     Indication: PROPHYLAXIS
     Dosage: 1 UG, UNK
     Route: 048
     Dates: start: 20050131, end: 20080824
  6. GASTER D [Concomitant]
     Indication: PROPHYLAXIS
     Dosage: 40 MG, UNK
     Route: 048
     Dates: start: 20050131, end: 20080824
  7. ALDACTONE [Concomitant]
     Dosage: 25 MG, UNK
     Route: 048
     Dates: start: 20080502, end: 20080824
  8. MEVALOTIN [Concomitant]
     Dosage: 10 MG, UNK
     Route: 048
     Dates: start: 20050131, end: 20080824
  9. ASPARA-CA [Concomitant]
     Indication: PROPHYLAXIS
     Dosage: 3 DF, UNK
     Route: 048
     Dates: start: 20070305, end: 20080824
  10. DESFERAL [Concomitant]
     Dosage: 1000 MG/DAY
     Dates: start: 20041130, end: 20080811

REACTIONS (1)
  - CARDIO-RESPIRATORY ARREST [None]
